FAERS Safety Report 13856449 (Version 2)
Quarter: 2018Q1

REPORT INFORMATION
  Report Type: Spontaneous
  Country: US (occurrence: US)
  Receive Date: 20170810
  Receipt Date: 20180223
  Transmission Date: 20180508
  Serious: No
  Sender: FDA-Public Use
  Company Number: US-009507513-1708USA002790

PATIENT
  Age: 61 Year
  Sex: Female

DRUGS (2)
  1. INTRON A [Suspect]
     Active Substance: INTERFERON ALFA-2B
     Indication: MYCOSIS FUNGOIDES
     Dosage: CONCENTRATION: 18 MILLION IU/3.8 ML) DOSE: 0.66 ML (4 MILLION IU) THREE TIMES A WEEK
     Route: 058
     Dates: start: 20170314, end: 2018
  2. OMEPRAZOLE. [Concomitant]
     Active Substance: OMEPRAZOLE

REACTIONS (12)
  - Skin disorder [Recovering/Resolving]
  - Decreased appetite [Recovering/Resolving]
  - Heart rate irregular [Recovering/Resolving]
  - Irritability [Unknown]
  - Blood thyroid stimulating hormone decreased [Recovering/Resolving]
  - Back pain [Unknown]
  - Constipation [Recovering/Resolving]
  - Irritability [Recovering/Resolving]
  - Nervousness [Unknown]
  - Anxiety [Recovering/Resolving]
  - Arthralgia [Unknown]
  - Fatigue [Recovering/Resolving]

NARRATIVE: CASE EVENT DATE: 20170713
